FAERS Safety Report 18307450 (Version 1)
Quarter: 2020Q3

REPORT INFORMATION
  Report Type: Spontaneous
  Country: SE (occurrence: SE)
  Receive Date: 20200924
  Receipt Date: 20200924
  Transmission Date: 20201103
  Serious: Yes (Other)
  Sender: FDA-Public Use
  Company Number: SE-MYLANLABS-2020M1079892

PATIENT
  Sex: Female

DRUGS (1)
  1. TAMOXIFEN MYLAN 20 MG TABLETTER [Suspect]
     Active Substance: TAMOXIFEN
     Indication: ADJUVANT THERAPY
     Dosage: ^1 TAB/DAG^
     Route: 048
     Dates: start: 2019

REACTIONS (2)
  - Musculoskeletal stiffness [Unknown]
  - Arthralgia [Unknown]
